FAERS Safety Report 10066380 (Version 2)
Quarter: 2014Q2

REPORT INFORMATION
  Report Type: Spontaneous
  Country: US (occurrence: US)
  Receive Date: 20140408
  Receipt Date: 20140408
  Transmission Date: 20141212
  Serious: Yes (Hospitalization, Other)
  Sender: FDA-Public Use
  Company Number: US-PFIZER INC-2014091768

PATIENT
  Age: 5 Month
  Sex: Male
  Weight: 7.2 kg

DRUGS (1)
  1. LIDOCAINE HCL [Suspect]
     Indication: TEETHING
     Dosage: (1 TSP OF 2%) 5 ML VISCOUS LIDOCAINE
     Route: 048

REACTIONS (3)
  - Overdose [Unknown]
  - Neurotoxicity [Recovered/Resolved]
  - Convulsion [Recovered/Resolved]
